FAERS Safety Report 10252518 (Version 2)
Quarter: 2014Q2

REPORT INFORMATION
  Report Type: Spontaneous
  Country: US (occurrence: US)
  Receive Date: 20140623
  Receipt Date: 20140630
  Transmission Date: 20141212
  Serious: No
  Sender: FDA-Public Use
  Company Number: US-009507513-1406USA010887

PATIENT
  Sex: Female
  Weight: 43.84 kg

DRUGS (2)
  1. OXYTROL FOR WOMEN [Suspect]
     Indication: MICTURITION URGENCY
     Dosage: 1 DF, Q4D
     Route: 062
     Dates: start: 20140413
  2. CELEBREX [Concomitant]
     Indication: ARTHRITIS
     Dosage: UNK, UNKNOWN

REACTIONS (3)
  - Dermatitis contact [Unknown]
  - Application site pruritus [Unknown]
  - Drug administration error [Unknown]
